FAERS Safety Report 6630774-0 (Version None)
Quarter: 2010Q1

REPORT INFORMATION
  Report Type: 
  Country: None (occurrence: None)
  Receive Date: 20100311
  Receipt Date: 20100301
  Transmission Date: 20100710
  Serious: Yes (Life-Threatening, Hospitalization, Other)
  Sender: FDA-Public Use
  Company Number: SK-ABBOTT-09P-260-0576232-00

PATIENT
  Sex: Male
  Weight: 83 kg

DRUGS (10)
  1. HUMIRA [Suspect]
     Indication: COLITIS ULCERATIVE
     Route: 058
     Dates: start: 20090219
  2. HELICID [Concomitant]
     Indication: ADRENOCORTICAL STEROID THERAPY
     Dates: start: 20090219, end: 20090525
  3. MEDROL [Concomitant]
     Indication: COLITIS ULCERATIVE
     Dates: start: 20090328, end: 20090416
  4. MEDROL [Concomitant]
     Dates: start: 20090417, end: 20090525
  5. MEDROL [Concomitant]
     Dates: start: 20090314, end: 20090320
  6. MEDROL [Concomitant]
     Dates: start: 20090321, end: 20090327
  7. MEDROL [Concomitant]
     Dates: start: 20090219, end: 20090308
  8. MEDROL [Concomitant]
     Dates: start: 20090309, end: 20090313
  9. IMURAN [Concomitant]
     Indication: COLITIS ULCERATIVE
     Dates: start: 20071010, end: 20090611
  10. PENTASA [Concomitant]
     Indication: COLITIS ULCERATIVE
     Dates: start: 20000101, end: 20090611

REACTIONS (4)
  - B-CELL LYMPHOMA [None]
  - LARGE INTESTINE PERFORATION [None]
  - PERITONITIS [None]
  - PNEUMOPERITONEUM [None]
